FAERS Safety Report 24406218 (Version 1)
Quarter: 2024Q4

REPORT INFORMATION
  Report Type: Spontaneous
  Country: CA (occurrence: CA)
  Receive Date: 20241007
  Receipt Date: 20241007
  Transmission Date: 20250114
  Serious: Yes (Hospitalization)
  Sender: PFIZER
  Company Number: CA-PFIZER INC-202400270503

PATIENT
  Age: 75 Year
  Sex: Male

DRUGS (13)
  1. FESOTERODINE [Suspect]
     Active Substance: FESOTERODINE
     Indication: Bladder disorder
     Dosage: 8 MG, 1X/DAY
     Route: 048
  2. RAMIPRIL [Suspect]
     Active Substance: RAMIPRIL
     Indication: Hypertension
     Dosage: 10 MG, 1X/DAY
     Route: 048
  3. BISOPROLOL [Concomitant]
     Active Substance: BISOPROLOL\BISOPROLOL FUMARATE
  4. CETIRIZINE [Concomitant]
     Active Substance: CETIRIZINE HYDROCHLORIDE
  5. CLOBETASOL [Concomitant]
     Active Substance: CLOBETASOL
  6. FUSIDIC ACID [Concomitant]
     Active Substance: FUSIDIC ACID
  7. MELATONIN [Concomitant]
     Active Substance: MELATONIN
  8. NIFEDIPINE [Concomitant]
     Active Substance: NIFEDIPINE
  9. PREDNISONE [Concomitant]
     Active Substance: PREDNISONE
  10. RIVAROXABAN [Concomitant]
     Active Substance: RIVAROXABAN
  11. TRAZODONE [Concomitant]
     Active Substance: TRAZODONE HYDROCHLORIDE
  12. VITAMIN D NOS [Concomitant]
     Active Substance: CHOLECALCIFEROL\ERGOCALCIFEROL
  13. ZOPICLONE [Concomitant]
     Active Substance: ZOPICLONE

REACTIONS (2)
  - Dermatitis atopic [Recovering/Resolving]
  - Drug eruption [Recovering/Resolving]
